FAERS Safety Report 17631312 (Version 1)
Quarter: 2020Q2

REPORT INFORMATION
  Report Type: Spontaneous
  Country: IT (occurrence: IT)
  Receive Date: 20200406
  Receipt Date: 20200406
  Transmission Date: 20200713
  Serious: Yes (Hospitalization, Other)
  Sender: FDA-Public Use
  Company Number: IT-SA-2020SA082059

PATIENT
  Age: 87 Year
  Sex: Female

DRUGS (10)
  1. TAREG [Concomitant]
     Active Substance: VALSARTAN
     Route: 048
  2. OMEPRAZOLE. [Concomitant]
     Active Substance: OMEPRAZOLE
     Dosage: 20 MG
     Route: 048
  3. CLEXANE [Suspect]
     Active Substance: ENOXAPARIN SODIUM
     Indication: THROMBOSIS PROPHYLAXIS
     Route: 058
     Dates: start: 20200101, end: 20200226
  4. MIRTAZAPINE. [Concomitant]
     Active Substance: MIRTAZAPINE
     Dosage: 30 MG
     Route: 048
  5. SINVACOR [Concomitant]
     Active Substance: SIMVASTATIN
     Route: 048
  6. ACETYLSALICYLIC ACID [Suspect]
     Active Substance: ASPIRIN
     Indication: THROMBOSIS PROPHYLAXIS
     Dosage: 1 DF, QD
     Route: 048
     Dates: start: 20200101, end: 20200226
  7. CALCIODIE [Concomitant]
     Route: 048
  8. TRAJENTA [Concomitant]
     Active Substance: LINAGLIPTIN
     Route: 048
  9. EUTIROX [Concomitant]
     Active Substance: LEVOTHYROXINE SODIUM
     Route: 048
  10. MOVICOL [MACROGOL 4000;POTASSIUM CHLORIDE;SODIUM BICARBONATE;SODIUM CH [Concomitant]
     Route: 048

REACTIONS (2)
  - Aphasia [Unknown]
  - Brain stem haemorrhage [Unknown]

NARRATIVE: CASE EVENT DATE: 20200226
